FAERS Safety Report 25480387 (Version 1)
Quarter: 2025Q2

REPORT INFORMATION
  Report Type: Spontaneous
  Country: US (occurrence: None)
  Receive Date: 20250623
  Receipt Date: 20250623
  Transmission Date: 20250717
  Serious: Yes (Hospitalization)
  Sender: FDA-CTU
  Company Number: None

PATIENT

DRUGS (2)
  1. DEVICE [Suspect]
     Active Substance: DEVICE
  2. MILRINONE [Suspect]
     Active Substance: MILRINONE

REACTIONS (4)
  - Device power source issue [None]
  - Device alarm issue [None]
  - Device failure [None]
  - Incorrect drug administration rate [None]

NARRATIVE: CASE EVENT DATE: 20250604
